FAERS Safety Report 8130888-2 (Version None)
Quarter: 2012Q1

REPORT INFORMATION
  Report Type: 
  Country: None (occurrence: None)
  Receive Date: 20120213
  Receipt Date: 20120203
  Transmission Date: 20120608
  Serious: No
  Sender: FDA-Public Use
  Company Number: US-PFIZER INC-2010176175

PATIENT
  Sex: Female
  Weight: 52 kg

DRUGS (3)
  1. TIMOLOL MALEATE [Suspect]
     Indication: GLAUCOMA
     Dosage: RIGHT EYE, ONCE DAILY
     Dates: start: 20100101
  2. XALATAN [Suspect]
     Indication: GLAUCOMA
     Dosage: UNK
     Route: 047
     Dates: start: 20091201
  3. ZOCOR [Concomitant]
     Indication: BLOOD CHOLESTEROL INCREASED
     Dosage: UNK

REACTIONS (6)
  - NASAL CONGESTION [None]
  - COUGH [None]
  - INCREASED UPPER AIRWAY SECRETION [None]
  - GASTROOESOPHAGEAL REFLUX DISEASE [None]
  - RESPIRATORY DISORDER [None]
  - SINUSITIS [None]
